FAERS Safety Report 19714621 (Version 1)
Quarter: 2021Q3

REPORT INFORMATION
  Report Type: Spontaneous
  Country: DE (occurrence: DE)
  Receive Date: 20210818
  Receipt Date: 20210818
  Transmission Date: 20211014
  Serious: Yes (Hospitalization, Other)
  Sender: FDA-Public Use
  Company Number: DE-AUROBINDO-AUR-APL-2021-034953

PATIENT
  Age: 68 Year
  Sex: Male
  Weight: 88 kg

DRUGS (5)
  1. DIGITOXIN [Concomitant]
     Active Substance: DIGITOXIN
     Indication: PRODUCT USED FOR UNKNOWN INDICATION
     Dosage: 0.1 MILLIGRAM (1?0?0?0)
     Route: 065
  2. PIRFENIDONE. [Concomitant]
     Active Substance: PIRFENIDONE
     Indication: PRODUCT USED FOR UNKNOWN INDICATION
     Dosage: 801 MILLIGRAM (1?1?1?1)
     Route: 065
  3. TORASEMIDE [Concomitant]
     Active Substance: TORSEMIDE
     Indication: PRODUCT USED FOR UNKNOWN INDICATION
     Dosage: UNK (1?0?0?0)
     Route: 065
  4. SPIRONOLACTONE. [Concomitant]
     Active Substance: SPIRONOLACTONE
     Indication: PRODUCT USED FOR UNKNOWN INDICATION
     Dosage: 100 MILLIGRAM (1?0?0?0)
     Route: 065
  5. IBUPROFEN. [Suspect]
     Active Substance: IBUPROFEN
     Indication: PRODUCT USED FOR UNKNOWN INDICATION
     Dosage: 800 MILLIGRAM (REQUIREMENT)
     Route: 065

REACTIONS (11)
  - Abdominal distension [Unknown]
  - Diarrhoea [Unknown]
  - Dysuria [Unknown]
  - Pulmonary fibrosis [Unknown]
  - Haematochezia [Unknown]
  - Abdominal pain [Unknown]
  - General physical health deterioration [Unknown]
  - Dyspnoea [Unknown]
  - Anaemia [Unknown]
  - Cough [Unknown]
  - Atrial fibrillation [Unknown]
